FAERS Safety Report 12756239 (Version 5)
Quarter: 2016Q4

REPORT INFORMATION
  Report Type: Report from Study
  Country: DE (occurrence: DE)
  Receive Date: 20160916
  Receipt Date: 20161118
  Transmission Date: 20170207
  Serious: Yes (Death, Life-Threatening, Other)
  Sender: FDA-Public Use
  Company Number: PHHY2016DE127520

PATIENT
  Age: 61 Year
  Sex: Male
  Weight: 80 kg

DRUGS (15)
  1. VOTRIENT [Suspect]
     Active Substance: PAZOPANIB HYDROCHLORIDE
     Indication: METASTATIC RENAL CELL CARCINOMA
     Dosage: 800 MG, QD
     Route: 048
     Dates: start: 20160722, end: 20160831
  2. TILIDIN ^RATIOPHARM^ [Concomitant]
     Active Substance: NALOXONE HYDROCHLORIDE\TILIDINE HYDROCHLORIDE
     Indication: PAIN
     Dosage: 50 MG, BID (PLUS 50 MG/4 MG/-100 MG/ 8 MG/-150 MG/12 MG/-200 MG/16 MG)
     Route: 048
     Dates: start: 201606
  3. RAMIPRIL BETA [Concomitant]
     Indication: HYPERTENSION
     Dosage: 2.5 MG, BID (2,5 MG/-5 MG/-10 MG)
     Route: 048
     Dates: start: 20160701
  4. DENOSUMAB [Concomitant]
     Active Substance: DENOSUMAB
     Indication: PROPHYLAXIS
     Dosage: 120 MG, QMO
     Route: 058
     Dates: start: 20160804
  5. PANTOZOL [Concomitant]
     Active Substance: PANTOPRAZOLE SODIUM
     Indication: PROPHYLAXIS
     Dosage: 40 MG, BID
     Route: 048
     Dates: start: 20160701
  6. KATADOLON [Concomitant]
     Active Substance: FLUPIRTINE
     Indication: PAIN
     Dosage: 60 MG, QD
     Route: 048
     Dates: start: 20160804
  7. MOVICOL [Concomitant]
     Active Substance: POLYETHYLENE GLYCOL 3350\POTASSIUM CHLORIDE\SODIUM BICARBONATE\SODIUM CHLORIDE
     Indication: CONSTIPATION
     Dosage: 1 OT, PRN
     Route: 048
     Dates: start: 201606
  8. NOVAMINSULFON-RATIOPHARM [Concomitant]
     Active Substance: METAMIZOLE
     Indication: PAIN
     Dosage: 40 OT, QID (DROPS FOR INTAKE)
     Route: 048
     Dates: start: 201606
  9. NOVAMINSULFON-RATIOPHARM [Concomitant]
     Active Substance: METAMIZOLE
     Indication: PAIN
     Dosage: 40 OT, QID (1 G/2 ML/-2,5 G/5 ML)
     Route: 048
     Dates: start: 201606
  10. JURNISTA [Concomitant]
     Active Substance: HYDROMORPHONE HYDROCHLORIDE
     Indication: PAIN
     Dosage: 4 MG, BID (4 MG/-8 MG/-16 MG/-32 MG/-64 MG)
     Route: 048
     Dates: start: 20160804
  11. TILIDIN ^RATIOPHARM^ [Concomitant]
     Active Substance: NALOXONE HYDROCHLORIDE\TILIDINE HYDROCHLORIDE
     Indication: PAIN
     Dosage: 50 MG, BID (PLUS DROPS FOR INTAKE, SOLUTION)
     Route: 048
     Dates: start: 201606
  12. KATADOLON [Concomitant]
     Active Substance: FLUPIRTINE
     Indication: PAIN
     Dosage: 60 MG, QD
     Route: 048
     Dates: start: 20160804
  13. NOVAMINSULFON-RATIOPHARM [Concomitant]
     Active Substance: METAMIZOLE
     Indication: PAIN
     Dosage: 40 OT, QID
     Route: 048
     Dates: start: 201606
  14. DEXAMETHASONE. [Concomitant]
     Active Substance: DEXAMETHASONE
     Indication: PAIN
     Dosage: 4 MG, BID (4 MG/ 8 MG)
     Route: 048
     Dates: start: 20160617
  15. KATADOLON [Concomitant]
     Active Substance: FLUPIRTINE
     Indication: PAIN
     Dosage: 60 MG, QD
     Route: 048
     Dates: start: 20160804

REACTIONS (7)
  - Metastases to bone [Unknown]
  - White blood cell count increased [Unknown]
  - Blood lactate dehydrogenase increased [Unknown]
  - C-reactive protein increased [Unknown]
  - Pneumonia [Fatal]
  - Apnoea [Fatal]
  - Atrial fibrillation [Recovering/Resolving]

NARRATIVE: CASE EVENT DATE: 20160728
